FAERS Safety Report 10158555 (Version 2)
Quarter: 2014Q2

REPORT INFORMATION
  Report Type: Spontaneous
  Country: US (occurrence: US)
  Receive Date: 20140507
  Receipt Date: 20140515
  Transmission Date: 20141212
  Serious: Yes (Other)
  Sender: FDA-Public Use
  Company Number: US-BAXTER-2014BAX022125

PATIENT
  Age: 43 Year
  Sex: Female
  Weight: 113.5 kg

DRUGS (1)
  1. ARALAST NP [Suspect]
     Indication: ALPHA-1 ANTI-TRYPSIN DEFICIENCY
     Route: 042
     Dates: start: 201106, end: 201106

REACTIONS (4)
  - Migraine [Recovered/Resolved]
  - Abdominal pain [Recovered/Resolved]
  - Tremor [Recovered/Resolved]
  - Feeling abnormal [Recovered/Resolved]
